FAERS Safety Report 14372630 (Version 2)
Quarter: 2018Q3

REPORT INFORMATION
  Report Type: Spontaneous
  Country: US (occurrence: US)
  Receive Date: 20180110
  Receipt Date: 20180928
  Transmission Date: 20181010
  Serious: Yes (Hospitalization, Other)
  Sender: FDA-Public Use
  Company Number: US-MYLANLABS-2017M1083734

PATIENT
  Age: 42 Year
  Sex: Female

DRUGS (1)
  1. MORPHINE [Suspect]
     Active Substance: MORPHINE
     Indication: ABDOMINAL PAIN
     Dosage: THROUGH INTRATHECAL DRUG DELIVERY DEVICE AT CONCENTRATION 50 MG/ML
     Route: 037
     Dates: start: 201602

REACTIONS (8)
  - Asthenia [Unknown]
  - Anaesthesia [Recovered/Resolved]
  - Granuloma [Recovered/Resolved]
  - Radiculopathy [Recovering/Resolving]
  - Condition aggravated [Recovered/Resolved]
  - Spinal cord oedema [Recovering/Resolving]
  - Urinary retention [Unknown]
  - Constipation [Unknown]
